FAERS Safety Report 9550766 (Version 6)
Quarter: 2020Q4

REPORT INFORMATION
  Report Type: Report from Study
  Country: US (occurrence: US)
  Receive Date: 20130924
  Receipt Date: 20201021
  Transmission Date: 20210114
  Serious: Yes (Hospitalization, Disabling, Other)
  Sender: FDA-Public Use
  Company Number: US-SANOFI-AVENTIS-2013SA047902

PATIENT
  Age: 62 Year
  Sex: Female

DRUGS (9)
  1. PROVIGIL [Suspect]
     Active Substance: MODAFINIL
     Dosage: UNK UNK,UNK
     Route: 065
  2. TERIFLUNOMIDE. [Suspect]
     Active Substance: TERIFLUNOMIDE
     Indication: MULTIPLE SCLEROSIS
     Dosage: 14 MG, QD
     Route: 048
     Dates: start: 2012
  3. IBUPROFEN. [Concomitant]
     Active Substance: IBUPROFEN
     Dosage: UNK
  4. TERIFLUNOMIDE. [Suspect]
     Active Substance: TERIFLUNOMIDE
     Dosage: 14 MG, QD
     Route: 048
  5. BACLOFEN. [Concomitant]
     Active Substance: BACLOFEN
     Indication: BACK PAIN
     Dosage: UNK
  6. GABAPENTIN. [Concomitant]
     Active Substance: GABAPENTIN
     Dosage: UNK
  7. LORAZEPAM. [Concomitant]
     Active Substance: LORAZEPAM
     Dosage: UNK
  8. VITAMIN D3 [Concomitant]
     Active Substance: CHOLECALCIFEROL
  9. PERCOCET [Suspect]
     Active Substance: ACETAMINOPHEN\OXYCODONE HYDROCHLORIDE
     Route: 065

REACTIONS (30)
  - Insomnia [Not Recovered/Not Resolved]
  - Dizziness [Unknown]
  - Fatigue [Unknown]
  - Weight decreased [Not Recovered/Not Resolved]
  - Depressed mood [Unknown]
  - Influenza like illness [Unknown]
  - Back pain [Recovering/Resolving]
  - Muscle spasms [Recovering/Resolving]
  - Laboratory test abnormal [Unknown]
  - Human chorionic gonadotropin increased [Unknown]
  - Alopecia [Not Recovered/Not Resolved]
  - Multiple sclerosis relapse [Not Recovered/Not Resolved]
  - Fatigue [Not Recovered/Not Resolved]
  - Tooth abscess [Recovered/Resolved]
  - Blood calcium increased [Unknown]
  - Unevaluable event [Unknown]
  - Gait disturbance [Unknown]
  - Spinal operation [Recovering/Resolving]
  - Asthenia [Unknown]
  - Blood albumin increased [Unknown]
  - Diarrhoea [Not Recovered/Not Resolved]
  - Low density lipoprotein increased [Unknown]
  - Dizziness [Recovering/Resolving]
  - Product dose omission issue [Unknown]
  - Multiple sclerosis relapse [Recovering/Resolving]
  - Decreased appetite [Not Recovered/Not Resolved]
  - Bronchitis [Unknown]
  - Pain in extremity [Unknown]
  - Nausea [Recovering/Resolving]
  - Nausea [Unknown]

NARRATIVE: CASE EVENT DATE: 2013
